FAERS Safety Report 7644305-X (Version None)
Quarter: 2011Q3

REPORT INFORMATION
  Report Type: 
  Country: None (occurrence: None)
  Receive Date: 20110729
  Receipt Date: 20110725
  Transmission Date: 20111222
  Serious: Yes (Hospitalization)
  Sender: FDA-Public Use
  Company Number: PHHO2011KR11097

PATIENT
  Sex: Male
  Weight: 60 kg

DRUGS (3)
  1. THALIDOMIDE [Concomitant]
     Indication: CHEMOTHERAPY
  2. ZOLEDRONIC [Suspect]
     Indication: MULTIPLE MYELOMA
     Dosage: 4 MG, UNK
     Route: 042
     Dates: start: 20110103
  3. MELPHALAN HYDROCHLORIDE [Concomitant]
     Indication: CHEMOTHERAPY

REACTIONS (5)
  - POST PROCEDURAL HAEMORRHAGE [None]
  - CELLULITIS [None]
  - ARTHRITIS BACTERIAL [None]
  - OSTEOMYELITIS [None]
  - TENDONITIS [None]
